FAERS Safety Report 10997299 (Version 1)
Quarter: 2015Q2

REPORT INFORMATION
  Report Type: Spontaneous
  Country: US (occurrence: None)
  Receive Date: 20150407
  Receipt Date: 20150407
  Transmission Date: 20150821
  Serious: Yes (Hospitalization)
  Sender: FDA-Public Use
  Company Number: None

PATIENT
  Age: 58 Year
  Sex: Male

DRUGS (18)
  1. METHYLPREDNISOLONE SOD SUCC (PF) (SOL-MEDROL PF) [Concomitant]
  2. ALLOPURINOL (ZYLOPRIM) [Concomitant]
  3. FERROUS SULFATE [Concomitant]
     Active Substance: FERROUS SULFATE\FERROUS SULFATE, DRIED
  4. METROLAZONE (ZAROXOLYN) [Concomitant]
  5. TYLENOL [Concomitant]
     Active Substance: ACETAMINOPHEN
  6. ARGATROBAN. [Concomitant]
     Active Substance: ARGATROBAN
  7. FLUOXETINE (PROZAC) [Concomitant]
  8. ARIPIPRAZOLE (ABILIFY) [Concomitant]
  9. ONDANSETRON (PF) (ZOFRAN) [Concomitant]
  10. PANTOPRAZOLE (PROTONIX) [Concomitant]
  11. MUPIROCIN 2% (BACTROBAN) [Concomitant]
  12. BUMERMIDE (BUMEX) [Concomitant]
  13. POTASSIUM CHLORIDE SR (K-TAB/KLOR-CON) [Concomitant]
  14. PSYLLIUM HUSK ORAL POWDER (KONSYL SURGAR-FREE) [Concomitant]
  15. TRACLEER [Suspect]
     Active Substance: BOSENTAN\BOSENTAN MONOHYDRATE
     Indication: PULMONARY ARTERIAL HYPERTENSION
     Route: 048
     Dates: end: 20150219
  16. NYLANTS/MALLOX [Concomitant]
  17. DIGOXIN (LANOXIN) [Concomitant]
  18. EPOPROSTENOL (VELETRI) [Concomitant]

REACTIONS (5)
  - Cardiac cirrhosis [None]
  - Right ventricular failure [None]
  - Thrombocytopenia [None]
  - Pulmonary hypertension [None]
  - Ascites [None]

NARRATIVE: CASE EVENT DATE: 20150218
